FAERS Safety Report 9702694 (Version 2)
Quarter: 2013Q4

REPORT INFORMATION
  Report Type: Report from Study
  Country: GB (occurrence: GB)
  Receive Date: 20131121
  Receipt Date: 20131121
  Transmission Date: 20140711
  Serious: Yes (Death)
  Sender: FDA-Public Use
  Company Number: GB-IPSEN BIOPHARMACEUTICALS, INC.-2012-3396

PATIENT
  Age: 77 Year
  Sex: Female

DRUGS (1)
  1. SOMATULINE AUTOGEL 120MG [Suspect]
     Indication: NEUROENDOCRINE TUMOUR
     Dosage: 120 MG
     Route: 065
     Dates: start: 20091030

REACTIONS (4)
  - Death [Fatal]
  - Oedema peripheral [Recovered/Resolved]
  - Fatigue [Unknown]
  - Inappropriate schedule of drug administration [Unknown]
